FAERS Safety Report 18253833 (Version 1)
Quarter: 2020Q3

REPORT INFORMATION
  Report Type: Spontaneous
  Country: US (occurrence: US)
  Receive Date: 20200910
  Receipt Date: 20200910
  Transmission Date: 20201103
  Serious: Yes (Other)
  Sender: FDA-Public Use
  Company Number: US-BIOMARINAP-US-2020-131953

PATIENT
  Age: 19 Year
  Sex: Female
  Weight: 102.6 kg

DRUGS (2)
  1. PALYNZIQ [Suspect]
     Active Substance: PEGVALIASE-PQPZ
     Dosage: UNK
     Route: 058
     Dates: start: 20200608
  2. PALYNZIQ [Suspect]
     Active Substance: PEGVALIASE-PQPZ
     Indication: PHENYLKETONURIA
     Dosage: 10 MILLIGRAM
     Route: 058

REACTIONS (4)
  - Injection site haemorrhage [Unknown]
  - Injection site infection [Unknown]
  - Injection site laceration [Unknown]
  - Injection site pain [Unknown]

NARRATIVE: CASE EVENT DATE: 202008
